FAERS Safety Report 7477023-1 (Version None)
Quarter: 2011Q2

REPORT INFORMATION
  Report Type: 
  Country: None (occurrence: None)
  Receive Date: 20110512
  Receipt Date: 20110503
  Transmission Date: 20111010
  Serious: Yes (Hospitalization)
  Sender: FDA-Public Use
  Company Number: GB-GENENTECH-308984

PATIENT
  Sex: Male
  Weight: 92 kg

DRUGS (28)
  1. RITUXAN [Suspect]
     Dosage: UNK
     Route: 048
     Dates: start: 20101104
  2. VINCRISTINE [Suspect]
     Indication: B-CELL LYMPHOMA
     Dosage: UNK
     Route: 042
     Dates: start: 20100813
  3. CYCLOPHOSPHAMIDE [Suspect]
     Dosage: UNK MG, SINGLE
     Route: 042
     Dates: start: 20101014, end: 20101014
  4. CHLORPHENIRAMINE MALEATE [Concomitant]
     Dosage: UNK
     Route: 042
     Dates: start: 20101104, end: 20110211
  5. ALLOPURINOL [Concomitant]
     Dosage: UNK
     Route: 048
     Dates: start: 20101104
  6. RITUXAN [Suspect]
     Indication: B-CELL LYMPHOMA
     Dosage: UNK
     Route: 048
     Dates: start: 20100813
  7. VINCRISTINE [Suspect]
     Dosage: UNK
     Route: 042
     Dates: start: 20101014, end: 20101014
  8. ONDANSETRON [Concomitant]
     Dosage: UNK
     Route: 042
     Dates: start: 20101104, end: 20101104
  9. ASPIRIN [Concomitant]
     Indication: HYPERTENSION
     Dosage: 75 MG, QAM
     Route: 048
  10. PREDNISOLONE [Suspect]
     Dosage: 80 MG, QD
     Route: 048
     Dates: start: 20101014, end: 20101018
  11. ONDANSETRON [Concomitant]
     Dosage: UNK
     Route: 042
     Dates: start: 20101014, end: 20101014
  12. DOMPERIDONE [Concomitant]
     Dosage: UNK
     Route: 048
     Dates: start: 20101104
  13. ACETAMINOPHEN [Suspect]
     Indication: PRODUCT USED FOR UNKNOWN INDICATION
     Dosage: UNK
     Route: 048
     Dates: start: 20100813, end: 20110211
  14. CHLORPHENIRAMINE MALEATE [Concomitant]
     Indication: PRODUCT USED FOR UNKNOWN INDICATION
     Dosage: UNK
     Route: 042
     Dates: start: 20100813
  15. COTRIM [Suspect]
     Indication: PRODUCT USED FOR UNKNOWN INDICATION
     Dosage: 960 MG, QID
     Route: 065
     Dates: start: 20101203
  16. ONDANSETRON [Concomitant]
     Indication: PRODUCT USED FOR UNKNOWN INDICATION
     Dosage: UNK
     Route: 042
     Dates: start: 20100813
  17. PREDNISOLONE [Suspect]
     Indication: B-CELL LYMPHOMA
     Dosage: UNK MG, QAM
     Route: 048
     Dates: start: 20100813
  18. PREDNISOLONE [Suspect]
     Dosage: UNK
     Route: 048
     Dates: start: 20101104, end: 20110211
  19. ALLOPURINOL [Concomitant]
     Indication: PRODUCT USED FOR UNKNOWN INDICATION
     Dosage: 300 MG, QAM
     Route: 048
     Dates: start: 20100813
  20. LISINOPRIL [Concomitant]
     Indication: HYPERTENSION
     Dosage: 5 MG, QAM
     Route: 048
  21. VINCRISTINE [Suspect]
     Dosage: UNK
     Route: 042
     Dates: start: 20101104, end: 20110211
  22. DOMPERIDONE [Concomitant]
     Dosage: UNK
     Route: 048
     Dates: start: 20101014
  23. CYCLOPHOSPHAMIDE [Suspect]
     Dosage: UNK
     Route: 042
     Dates: start: 20101104, end: 20110211
  24. RITUXAN [Suspect]
     Dosage: UNK
     Route: 048
     Dates: start: 20101014, end: 20101014
  25. CYCLOPHOSPHAMIDE [Suspect]
     Indication: B-CELL LYMPHOMA
     Dosage: UNK
     Route: 042
     Dates: start: 20100813
  26. DOMPERIDONE [Concomitant]
     Indication: PRODUCT USED FOR UNKNOWN INDICATION
     Dosage: UNK
     Route: 048
     Dates: start: 20100813
  27. ALLOPURINOL [Concomitant]
     Dosage: 300 MG, QD
     Route: 048
     Dates: start: 20101014
  28. NATURETIN-5 [Concomitant]
     Indication: HYPERTENSION
     Dosage: 2.5 MG, QAM
     Route: 048

REACTIONS (2)
  - PNEUMOCYSTIS JIROVECI PNEUMONIA [None]
  - HYPERGLYCAEMIA [None]
